FAERS Safety Report 23793407 (Version 1)
Quarter: 2024Q2

REPORT INFORMATION
  Report Type: Spontaneous
  Country: FR (occurrence: FR)
  Receive Date: 20240429
  Receipt Date: 20240429
  Transmission Date: 20240716
  Serious: Yes (Hospitalization, Other)
  Sender: FDA-Public Use
  Company Number: FR-SA-2015SA216056

PATIENT
  Age: 34 Year
  Sex: Female

DRUGS (7)
  1. PREDNISOLONE [Suspect]
     Active Substance: PREDNISOLONE
     Indication: Immunosuppression
     Dosage: DAILY DOSE: 7.5 MILLIGRAM
  2. VALGANCICLOVIR [Suspect]
     Active Substance: VALGANCICLOVIR
     Indication: Cytomegalovirus infection
  3. GANCICLOVIR [Suspect]
     Active Substance: GANCICLOVIR
  4. MYCOPHENOLATE MOFETIL [Suspect]
     Active Substance: MYCOPHENOLATE MOFETIL
     Indication: Immunosuppression
     Dosage: DAILY DOSE: 1000 MILLIGRAM
  5. MYCOPHENOLATE MOFETIL [Suspect]
     Active Substance: MYCOPHENOLATE MOFETIL
     Indication: Immunosuppression
     Dosage: MMF WAS REPLACED BY EVEROLIMUS?DAILY DOSE: 1000 MILLIGRAM
  6. TACROLIMUS [Suspect]
     Active Substance: TACROLIMUS
     Indication: Immunosuppression
  7. EVEROLIMUS [Suspect]
     Active Substance: EVEROLIMUS

REACTIONS (7)
  - Gastroenteritis viral [Unknown]
  - Herpes simplex hepatitis [Recovered/Resolved]
  - Cytomegalovirus infection [Unknown]
  - Cholecystitis chronic [Unknown]
  - General physical health deterioration [Unknown]
  - Off label use [Unknown]
  - Drug resistance [Unknown]
